FAERS Safety Report 15041818 (Version 1)
Quarter: 2018Q2

REPORT INFORMATION
  Report Type: Spontaneous
  Country: DE (occurrence: DE)
  Receive Date: 20180621
  Receipt Date: 20180621
  Transmission Date: 20180711
  Serious: Yes (Other)
  Sender: FDA-Public Use
  Company Number: DE-CONCORDIA PHARMACEUTICALS INC.-E2B_00012645

PATIENT
  Age: 62 Year
  Sex: Male

DRUGS (3)
  1. LEVETIRACETAM. [Concomitant]
     Active Substance: LEVETIRACETAM
     Indication: PROPHYLAXIS
     Dosage: DAILY DOSE: 2 G GRAM(S) EVERY DAYS
     Dates: start: 201703
  2. BUDESONIDE. [Concomitant]
     Active Substance: BUDESONIDE
     Indication: NASAL POLYPS
     Dosage: DAILY DOSE: 2 DF DOSAGE FORM EVERY 4 DAYS
     Dates: start: 20180323, end: 20180328
  3. PREDNISOLONE. [Suspect]
     Active Substance: PREDNISOLONE
     Indication: NASAL POLYPS
     Dosage: DAILY DOSE: 40 MG MILLGRAM(S) EVERY DAYS
     Route: 048
     Dates: start: 20180323, end: 20180328

REACTIONS (2)
  - Condition aggravated [Recovered/Resolved]
  - Epilepsy [Recovered/Resolved]

NARRATIVE: CASE EVENT DATE: 20180327
